FAERS Safety Report 25859295 (Version 1)
Quarter: 2025Q3

REPORT INFORMATION
  Report Type: Spontaneous
  Country: EU (occurrence: EU)
  Receive Date: 20250929
  Receipt Date: 20250929
  Transmission Date: 20251020
  Serious: Yes (Other)
  Sender: ARGENX BVBA
  Company Number: EU-ARGENX-2025-ARGX-NL008704

PATIENT

DRUGS (2)
  1. EFGARTIGIMOD ALFA [Suspect]
     Active Substance: EFGARTIGIMOD ALFA
     Indication: Antiacetylcholine receptor antibody
     Dosage: 10 MG/KG (600 MG), 1/WEEK
     Route: 065
  2. EFGARTIGIMOD ALFA [Suspect]
     Active Substance: EFGARTIGIMOD ALFA
     Indication: Myasthenia gravis

REACTIONS (5)
  - Foetal hypokinesia [Unknown]
  - Maternal exposure during pregnancy [Recovered/Resolved]
  - Uterine hypotonus [Unknown]
  - Drug effective for unapproved indication [Unknown]
  - Off label use [Unknown]
